FAERS Safety Report 8102985-9 (Version None)
Quarter: 2012Q1

REPORT INFORMATION
  Report Type: 
  Country: None (occurrence: None)
  Receive Date: 20120201
  Receipt Date: 20120127
  Transmission Date: 20120608
  Serious: Yes (Hospitalization, Other)
  Sender: FDA-Public Use
  Company Number: US-JNJFOC-20120112831

PATIENT
  Sex: Female
  Weight: 63.5 kg

DRUGS (3)
  1. LEVAQUIN [Suspect]
     Route: 048
     Dates: start: 20120101, end: 20120101
  2. LEVAQUIN [Suspect]
     Indication: SINUSITIS
     Route: 048
     Dates: start: 20111201, end: 20111201
  3. ADVAIR DISKUS 100/50 [Concomitant]
     Indication: ASTHMA
     Route: 055

REACTIONS (13)
  - MUSCULOSKELETAL PAIN [None]
  - NAUSEA [None]
  - ASTHENIA [None]
  - DEHYDRATION [None]
  - ABASIA [None]
  - WEIGHT DECREASED [None]
  - HEADACHE [None]
  - CONSCIOUSNESS FLUCTUATING [None]
  - ABDOMINAL PAIN UPPER [None]
  - DECREASED APPETITE [None]
  - DIZZINESS [None]
  - VERTIGO [None]
  - FEELING HOT [None]
